FAERS Safety Report 6130269-7 (Version None)
Quarter: 2009Q1

REPORT INFORMATION
  Report Type: 
  Country: None (occurrence: None)
  Receive Date: 20090324
  Receipt Date: 20090318
  Transmission Date: 20090719
  Serious: Yes (Other)
  Sender: FDA-Public Use
  Company Number: PHHY2009DE01894

PATIENT
  Age: 68 Year
  Sex: Male

DRUGS (4)
  1. DIOVAN [Suspect]
     Indication: HYPERTENSION
     Dosage: 160 MG
     Dates: start: 20081101
  2. DIOVAN [Suspect]
     Dosage: 80 MG
  3. NIFEDIPINE [Concomitant]
     Indication: HYPERTENSION
     Dosage: 1 DF, QD
  4. BUDESONIDE [Concomitant]
     Dosage: 1 DF, BID

REACTIONS (9)
  - BLOOD PRESSURE FLUCTUATION [None]
  - BLOOD PRESSURE INCREASED [None]
  - DISTURBANCE IN ATTENTION [None]
  - DIZZINESS [None]
  - HYPERTENSIVE CRISIS [None]
  - HYPOTENSION [None]
  - MEDICATION ERROR [None]
  - SOMNOLENCE [None]
  - VOMITING [None]
